FAERS Safety Report 7591455-2 (Version None)
Quarter: 2011Q3

REPORT INFORMATION
  Report Type: 
  Country: None (occurrence: None)
  Receive Date: 20110701
  Receipt Date: 20110701
  Transmission Date: 20111222
  Serious: No
  Sender: FDA-Public Use
  Company Number: None

PATIENT
  Age: 77 Year
  Sex: Female
  Weight: 78.8 kg

DRUGS (1)
  1. HYDROXYUREA [Suspect]

REACTIONS (1)
  - MYELOPROLIFERATIVE DISORDER [None]
